FAERS Safety Report 4804458-5 (Version None)
Quarter: 2005Q4

REPORT INFORMATION
  Report Type: 
  Country: None (occurrence: None)
  Receive Date: 20051014
  Receipt Date: 20051004
  Transmission Date: 20060501
  Serious: Yes (Hospitalization, Other)
  Sender: FDA-Public Use
  Company Number: 2005137431

PATIENT
  Age: 75 Year
  Sex: Female
  Weight: 86.1834 kg

DRUGS (2)
  1. LIPITOR [Suspect]
     Indication: BLOOD CHOLESTEROL INCREASED
     Dosage: (1 IN 1 D), ORAL
     Route: 048
     Dates: start: 20040101, end: 20040101
  2. ALL OTHER THERAPEUTIC PRODUCTS (ALL  OTHER THERAPEUTIC PRODUCTS) [Suspect]
     Indication: SLEEP DISORDER
     Dates: start: 20050101

REACTIONS (17)
  - ABDOMINAL PAIN UPPER [None]
  - DIFFICULTY IN WALKING [None]
  - DRUG EFFECT DECREASED [None]
  - DRUG HYPERSENSITIVITY [None]
  - DYSSTASIA [None]
  - FALL [None]
  - INSOMNIA [None]
  - MUSCLE ATROPHY [None]
  - MUSCULAR WEAKNESS [None]
  - MYALGIA [None]
  - ORAL INTAKE REDUCED [None]
  - PAIN IN EXTREMITY [None]
  - PAROSMIA [None]
  - RESTLESSNESS [None]
  - SCREAMING [None]
  - VOMITING [None]
  - WEIGHT DECREASED [None]
